FAERS Safety Report 20029385 (Version 4)
Quarter: 2022Q1

REPORT INFORMATION
  Report Type: Spontaneous
  Country: US (occurrence: US)
  Receive Date: 20211103
  Receipt Date: 20220221
  Transmission Date: 20220423
  Serious: No
  Sender: FDA-Public Use
  Company Number: US-NOVARTISTESTPH-NVSC2021US251195

PATIENT
  Sex: Female

DRUGS (1)
  1. XIIDRA [Suspect]
     Active Substance: LIFITEGRAST
     Indication: Product used for unknown indication
     Dosage: 5 DF, BID
     Route: 065

REACTIONS (5)
  - Vision blurred [Unknown]
  - Eye irritation [Unknown]
  - Throat irritation [Unknown]
  - Asthenia [Unknown]
  - Insomnia [Unknown]
